FAERS Safety Report 9206065 (Version 1)
Quarter: 2013Q1

REPORT INFORMATION
  Report Type: Spontaneous
  Country: US (occurrence: None)
  Receive Date: 20120709
  Receipt Date: 20120709
  Transmission Date: 20140127
  Serious: Yes (Other)
  Sender: FDA-Public Use
  Company Number: PHHY2010US53241

PATIENT
  Age: 61 Year
  Sex: Female
  Weight: 62.6 kg

DRUGS (3)
  1. GLEEVEC [Suspect]
     Indication: CHRONIC MYELOID LEUKAEMIA
     Dosage: 400 MG ONCE DAILY
     Route: 048
     Dates: start: 2000
  2. LORAZEPAM (LORAZEPAM) [Concomitant]
  3. PREVACID (LANSOPRAZOLE) [Concomitant]

REACTIONS (10)
  - Depression [None]
  - Anxiety [None]
  - General physical condition abnormal [None]
  - Nausea [None]
  - Abdominal discomfort [None]
  - Alopecia [None]
  - Fatigue [None]
  - Haemoglobin decreased [None]
  - Bone pain [None]
  - Insomnia [None]
